FAERS Safety Report 7966956-5 (Version None)
Quarter: 2011Q4

REPORT INFORMATION
  Report Type: 
  Country: None (occurrence: None)
  Receive Date: 20111207
  Receipt Date: 20111207
  Transmission Date: 20120403
  Serious: Yes (Hospitalization)
  Sender: FDA-Public Use
  Company Number: None

PATIENT
  Sex: Female
  Weight: 60.782 kg

DRUGS (1)
  1. REVATIO [Suspect]
     Indication: PULMONARY ARTERIAL HYPERTENSION
     Dosage: 20 MG TID ORAL
     Route: 048
     Dates: start: 20100420

REACTIONS (3)
  - URINARY TRACT INFECTION [None]
  - FLUID RETENTION [None]
  - DYSPNOEA [None]
